FAERS Safety Report 11700033 (Version 1)
Quarter: 2015Q4

REPORT INFORMATION
  Report Type: Spontaneous
  Country: US (occurrence: US)
  Receive Date: 20151105
  Receipt Date: 20151105
  Transmission Date: 20160304
  Serious: No
  Sender: FDA-Public Use
  Company Number: US-HORIZON-PEN-0203-2015

PATIENT
  Sex: Male

DRUGS (1)
  1. PENNSAID [Suspect]
     Active Substance: DICLOFENAC SODIUM
     Indication: JOINT INJURY

REACTIONS (2)
  - Muscle spasms [Unknown]
  - Off label use [Unknown]

NARRATIVE: CASE EVENT DATE: 20151030
